FAERS Safety Report 5509536-3 (Version None)
Quarter: 2007Q4

REPORT INFORMATION
  Report Type: 
  Country: None (occurrence: None)
  Receive Date: 20071029
  Receipt Date: 20070816
  Transmission Date: 20080405
  Serious: No
  Sender: FDA-Public Use
  Company Number: 012926

PATIENT
  Age: 35 Year
  Sex: Male

DRUGS (7)
  1. PRIALT [Suspect]
     Indication: NECK PAIN
     Dosage: 0.02 UG, ONCE/HOUR, INTRATHECAL ; 0.09 UG, ONCE/HOUR, INTRATHECAL
     Route: 037
     Dates: start: 20070301
  2. PRIALT [Suspect]
     Indication: PROCEDURAL PAIN
     Dosage: 0.02 UG, ONCE/HOUR, INTRATHECAL ; 0.09 UG, ONCE/HOUR, INTRATHECAL
     Route: 037
     Dates: start: 20070301
  3. MORPHINE [Concomitant]
  4. BUPIVACAINE [Concomitant]
  5. BACLOFEN [Concomitant]
  6. MARCAINE /00330101/ (BUPIVACAINE) [Concomitant]
  7. OXYCONTIN [Concomitant]

REACTIONS (5)
  - ABNORMAL DREAMS [None]
  - DIARRHOEA [None]
  - DISTURBANCE IN ATTENTION [None]
  - MEMORY IMPAIRMENT [None]
  - POLLAKIURIA [None]
